FAERS Safety Report 26117918 (Version 1)
Quarter: 2025Q4

REPORT INFORMATION
  Report Type: Spontaneous
  Country: GB (occurrence: GB)
  Receive Date: 20251203
  Receipt Date: 20251203
  Transmission Date: 20260117
  Serious: Yes (Life-Threatening, Hospitalization, Other)
  Sender: GRIFOLS
  Company Number: GB-IGSA-BIG0039544

PATIENT
  Age: 48 Year
  Sex: Male
  Weight: 73.1 kg

DRUGS (8)
  1. XEMBIFY [Suspect]
     Active Substance: HUMAN IMMUNOGLOBULIN G
     Indication: Immunodeficiency common variable
     Dosage: 8 GRAM, Q.WK.
     Dates: start: 202508, end: 20251001
  2. XEMBIFY [Suspect]
     Active Substance: HUMAN IMMUNOGLOBULIN G
     Dosage: 8 GRAM, Q.WK.
     Dates: start: 202508, end: 20251001
  3. XEMBIFY [Suspect]
     Active Substance: HUMAN IMMUNOGLOBULIN G
     Dosage: 8 GRAM, Q.WK.
     Dates: start: 20251121
  4. XEMBIFY [Suspect]
     Active Substance: HUMAN IMMUNOGLOBULIN G
     Dosage: 8 GRAM, Q.WK.
     Dates: start: 20251121
  5. BISOPROLOL [Concomitant]
     Active Substance: BISOPROLOL
  6. RAMIPRIL [Concomitant]
     Active Substance: RAMIPRIL
  7. TICAGRELOR [Concomitant]
     Active Substance: TICAGRELOR
  8. ATORVASTATIN [Concomitant]
     Active Substance: ATORVASTATIN

REACTIONS (3)
  - Myocardial infarction [Recovering/Resolving]
  - Coronary artery stenosis [Recovering/Resolving]
  - Chest discomfort [Recovering/Resolving]

NARRATIVE: CASE EVENT DATE: 20250930
